FAERS Safety Report 6758902-7 (Version None)
Quarter: 2010Q2

REPORT INFORMATION
  Report Type: 
  Country: None (occurrence: None)
  Receive Date: 20100607
  Receipt Date: 20100528
  Transmission Date: 20101027
  Serious: Yes (Hospitalization)
  Sender: FDA-Public Use
  Company Number: PHHO2010US05141

PATIENT
  Sex: Male
  Weight: 86.6 kg

DRUGS (4)
  1. CERTICAN [Suspect]
     Indication: RENAL TRANSPLANT
     Dosage: 1.5MG/DAY
     Route: 048
     Dates: start: 20100124
  2. PROGRAF [Concomitant]
  3. PREDNISONE [Concomitant]
  4. AMIODARONE HYDROCHLORIDE [Concomitant]

REACTIONS (5)
  - ATELECTASIS [None]
  - DYSPNOEA [None]
  - FLUID OVERLOAD [None]
  - PRODUCTIVE COUGH [None]
  - VIRAL INFECTION [None]
